FAERS Safety Report 5307700-X (Version None)
Quarter: 2007Q2

REPORT INFORMATION
  Report Type: 
  Country: None (occurrence: None)
  Receive Date: 20070419
  Receipt Date: 20070330
  Transmission Date: 20071010
  Serious: Yes (Disabling)
  Sender: FDA-Public Use
  Company Number: 07H-163-0312421-00

PATIENT
  Sex: Male

DRUGS (1)
  1. DEMEROL [Suspect]
     Indication: HEADACHE
     Dosage: 100MG, 3 TIMES WEEKLY, INTRAMUSCULAR
     Route: 030
     Dates: start: 20000101, end: 20050101

REACTIONS (2)
  - BACK PAIN [None]
  - NECK PAIN [None]
